FAERS Safety Report 24425340 (Version 1)
Quarter: 2024Q4

REPORT INFORMATION
  Report Type: Report from Study
  Country: NL (occurrence: NL)
  Receive Date: 20241011
  Receipt Date: 20241011
  Transmission Date: 20250114
  Serious: Yes (Other)
  Sender: ABBVIE
  Company Number: NL-ABBVIE-5955061

PATIENT
  Sex: Female

DRUGS (8)
  1. CARBIDOPA\LEVODOPA [Suspect]
     Active Substance: CARBIDOPA\LEVODOPA
     Indication: Parkinson^s disease
     Route: 050
     Dates: start: 20221202
  2. CARBIDOPA\LEVODOPA [Suspect]
     Active Substance: CARBIDOPA\LEVODOPA
     Dosage: MD: 3.8ML, CD: 2.2ML/H, END: 1.00ML, CND: 3.2ML/H, DURATION: REMAINS AT 24 HOURS
     Route: 050
     Dates: start: 20241003
  3. POLYETHYLENE GLYCOLS [Concomitant]
     Active Substance: POLYETHYLENE GLYCOLS
     Indication: Product used for unknown indication
     Dosage: IF NECESSARY 1
  4. CARBIDOPA\LEVODOPA [Concomitant]
     Active Substance: CARBIDOPA\LEVODOPA
     Indication: Product used for unknown indication
     Dosage: 100/25 MG, 2 TABLET
     Route: 048
  5. CARBIDOPA\LEVODOPA [Concomitant]
     Active Substance: CARBIDOPA\LEVODOPA
     Indication: Product used for unknown indication
     Dosage: TIME INTERVAL: 0.16666667 DAYS: 100/25MG, 08:00-10:00-12:00-14:00-16:00-3:00
     Route: 048
  6. PRAMIPEXOLE [Concomitant]
     Active Substance: PRAMIPEXOLE\PRAMIPEXOLE DIHYDROCHLORIDE
     Indication: Product used for unknown indication
     Dosage: 0.26MG BASE, 4 TABLET, FORM STRENGTH: 0.375 MILLIGRAM
     Route: 048
  7. SELEGILINE [Concomitant]
     Active Substance: SELEGILINE
     Indication: Product used for unknown indication
     Dosage: FORM STRENGTH: 5 MILLIGRAM
     Route: 048
  8. Rivagstigmine [Concomitant]
     Indication: Product used for unknown indication

REACTIONS (18)
  - Cataract [Not Recovered/Not Resolved]
  - Gait disturbance [Not Recovered/Not Resolved]
  - Bradykinesia [Not Recovered/Not Resolved]
  - Impaired gastric emptying [Not Recovered/Not Resolved]
  - Mental disorder [Not Recovered/Not Resolved]
  - Fibroma [Not Recovered/Not Resolved]
  - Decreased appetite [Not Recovered/Not Resolved]
  - Memory impairment [Not Recovered/Not Resolved]
  - Stoma site discharge [Not Recovered/Not Resolved]
  - Abnormal dreams [Recovering/Resolving]
  - Tension [Not Recovered/Not Resolved]
  - Ageusia [Not Recovered/Not Resolved]
  - Device dislocation [Recovered/Resolved]
  - Stoma site erythema [Not Recovered/Not Resolved]
  - Muscle rigidity [Not Recovered/Not Resolved]
  - Dyskinesia [Not Recovered/Not Resolved]
  - Nocturia [Not Recovered/Not Resolved]
  - Hallucination [Recovered/Resolved]
